FAERS Safety Report 18043993 (Version 1)
Quarter: 2020Q3

REPORT INFORMATION
  Report Type: Spontaneous
  Country: US (occurrence: US)
  Receive Date: 20200720
  Receipt Date: 20200720
  Transmission Date: 20201103
  Serious: No
  Sender: FDA-Public Use
  Company Number: US-SA-2018SA129709

PATIENT

DRUGS (1)
  1. LANTUS SOLOSTAR [Suspect]
     Active Substance: INSULIN GLARGINE
     Indication: TYPE 2 DIABETES MELLITUS
     Dosage: 17 UNITS IN THE MORNING AND 12 UNITS AT NIGHT
     Route: 065
     Dates: start: 2015

REACTIONS (4)
  - Inappropriate schedule of product administration [Unknown]
  - Visual impairment [Unknown]
  - Memory impairment [Unknown]
  - Agitation [Unknown]
